FAERS Safety Report 16697542 (Version 10)
Quarter: 2020Q3

REPORT INFORMATION
  Report Type: Report from Study
  Country: US (occurrence: US)
  Receive Date: 20190813
  Receipt Date: 20200826
  Transmission Date: 20201102
  Serious: Yes (Hospitalization)
  Sender: FDA-Public Use
  Company Number: US-ROCHE-2368763

PATIENT
  Age: 41 Year
  Sex: Female
  Weight: 86.2 kg

DRUGS (21)
  1. OCRELIZUMAB. [Suspect]
     Active Substance: OCRELIZUMAB
     Indication: PRIMARY PROGRESSIVE MULTIPLE SCLEROSIS
     Dosage: SUBSEQUENT DOSE ON: 19/JAN/2016, 17/JUN/2016, 30/JUN/2016, 04/AUG/2016, 08/DEC/2016, 22/DEC/2016, 19
     Route: 042
     Dates: start: 20160104
  2. EXCEDRIN (UNITED STATES) [Concomitant]
     Indication: INFLUENZA LIKE ILLNESS
     Dates: start: 20180406, end: 20180418
  3. AZITHROMYCIN ANHYDROUS. [Concomitant]
     Active Substance: AZITHROMYCIN ANHYDROUS
     Indication: URINARY TRACT INFECTION
     Dates: start: 20190909, end: 20190913
  4. DIPHENHYDRAMINE. [Concomitant]
     Active Substance: DIPHENHYDRAMINE
     Dosage: SUBSEQUENT DOSE ON: 01/OCT/2012, 15/OCT/2012, 25/MAR/2013, 12/APR/2013, 09/SEP/2013, 30/SEP/2013, 24
     Dates: start: 20121001
  5. METHYLPREDNISOLONE. [Concomitant]
     Active Substance: METHYLPREDNISOLONE
     Dosage: SUBSEQUENT DOSE ON: 01/OCT/2012, 15/OCT/2012, 25/MAR/2013, 12/APR/2013, 09/SEP/2013, 30/SEP/2013, 24
     Dates: start: 20121001
  6. FERROUS SULFATE. [Concomitant]
     Active Substance: FERROUS SULFATE
     Indication: IRON DEFICIENCY ANAEMIA
     Dates: start: 20160126
  7. VITAMIN B12 [Concomitant]
     Active Substance: CYANOCOBALAMIN
     Dates: start: 201202
  8. DALFAMPRIDINE. [Concomitant]
     Active Substance: DALFAMPRIDINE
     Indication: MUSCLE SPASTICITY
     Dates: start: 201206
  9. MODAFINIL. [Concomitant]
     Active Substance: MODAFINIL
     Indication: FATIGUE
     Dates: start: 20171220
  10. ACETAMINOPHEN. [Concomitant]
     Active Substance: ACETAMINOPHEN
     Indication: HEADACHE
     Dosage: SUBSEQUENT DOSE ON: 01/OCT/2012, 15/OCT/2012, 25/MAR/2013, 12/APR/2013, 09/SEP/2013, 30/SEP/2013, 24
     Dates: start: 20121001
  11. ACETAMINOPHEN. [Concomitant]
     Active Substance: ACETAMINOPHEN
     Dates: start: 2004
  12. OCRELIZUMAB. [Suspect]
     Active Substance: OCRELIZUMAB
     Indication: PRIMARY PROGRESSIVE MULTIPLE SCLEROSIS
     Dosage: SUBSEQUENT DOSE ON: 01/OCT/2012, 15/OCT/2012, 25/MAR/2013, 12/APR/2013, 09/SEP/2013, 30/SEP/2013, 24
     Route: 042
     Dates: start: 20121001
  13. ZOLOFT [Concomitant]
     Active Substance: SERTRALINE HYDROCHLORIDE
     Indication: DEPRESSION
     Dates: start: 20181215
  14. NYSTATIN. [Concomitant]
     Active Substance: NYSTATIN
     Indication: RASH
     Dosage: 3 PACKET (3 OTHER APPLICATION)
     Dates: start: 20190731
  15. AZITHROMYCIN ANHYDROUS. [Concomitant]
     Active Substance: AZITHROMYCIN ANHYDROUS
     Indication: SKIN INFECTION
     Dosage: SUBSEQUENT DOSE ON: 05/AUG/2015, 19/DEC/2013, 17/DEC/2015
     Dates: start: 20150103, end: 20150106
  16. AZITHROMYCIN ANHYDROUS. [Concomitant]
     Active Substance: AZITHROMYCIN ANHYDROUS
     Indication: BRONCHITIS
     Dosage: SUBSEQUENT DOSE ON: 16/DEC/2015, 04/AUG/2015
     Dates: start: 20150102, end: 20150102
  17. VICKS DAYQUIL [Concomitant]
     Active Substance: DEXTROMETHORPHAN HYDROBROMIDE\GUAIFENESIN
     Indication: PNEUMONIA
     Dates: start: 20190218, end: 20190221
  18. AZITHROMYCIN ANHYDROUS. [Concomitant]
     Active Substance: AZITHROMYCIN ANHYDROUS
     Indication: SKIN INFECTION
     Dates: start: 20190221, end: 20190225
  19. OXYBUTYNIN. [Concomitant]
     Active Substance: OXYBUTYNIN CHLORIDE
     Dosage: BLADDER SYMPTOMS
     Dates: start: 20140708
  20. OXYBUTYNIN. [Concomitant]
     Active Substance: OXYBUTYNIN CHLORIDE
     Dates: start: 20180430
  21. MACROBID [Concomitant]
     Active Substance: NITROFURANTOIN\NITROFURANTOIN MONOHYDRATE
     Indication: URINARY TRACT INFECTION
     Dates: start: 20191120, end: 20191127

REACTIONS (1)
  - Sepsis [Recovered/Resolved]

NARRATIVE: CASE EVENT DATE: 20190702
